FAERS Safety Report 17291496 (Version 1)
Quarter: 2020Q1

REPORT INFORMATION
  Report Type: Report from Study
  Country: IE (occurrence: IE)
  Receive Date: 20200121
  Receipt Date: 20200121
  Transmission Date: 20200409
  Serious: Yes (Hospitalization)
  Sender: FDA-Public Use
  Company Number: IE-BAYER-2019-198797

PATIENT
  Age: 58 Year
  Sex: Male

DRUGS (2)
  1. NEXAVAR [Suspect]
     Active Substance: SORAFENIB
     Indication: HEPATOCELLULAR CARCINOMA
     Dosage: 200 MG, BID
     Route: 048
     Dates: start: 2019, end: 20191204
  2. NEXAVAR [Suspect]
     Active Substance: SORAFENIB
     Indication: HEPATOCELLULAR CARCINOMA
     Dosage: 200 MG AM
     Route: 048
     Dates: start: 20190607, end: 2019

REACTIONS (5)
  - Vomiting [None]
  - Abdominal pain [Not Recovered/Not Resolved]
  - Nipple swelling [None]
  - Pustule [Not Recovered/Not Resolved]
  - Nipple pain [None]

NARRATIVE: CASE EVENT DATE: 20191023
